FAERS Safety Report 4305353-0 (Version None)
Quarter: 2004Q1

REPORT INFORMATION
  Report Type: 
  Country: None (occurrence: None)
  Receive Date: 20040226
  Receipt Date: 20030710
  Transmission Date: 20041129
  Serious: Yes (Other)
  Sender: FDA-Public Use
  Company Number: US-BRISTOL-MYERS SQUIBB COMPANY-12322228

PATIENT
  Age: 56 Year
  Sex: Female

DRUGS (4)
  1. TAXOL [Suspect]
     Indication: BREAST CANCER
     Dosage: 1ST DOSE
     Dates: start: 20030512, end: 20030512
  2. ARANESP [Suspect]
     Indication: NEOPLASM MALIGNANT
     Route: 058
     Dates: start: 20030428, end: 20030527
  3. NEULASTA [Suspect]
     Indication: NEUTROPENIA
     Dates: start: 20030318, end: 20030318
  4. LISINOPRIL [Concomitant]

REACTIONS (3)
  - FACE OEDEMA [None]
  - OEDEMA PERIPHERAL [None]
  - RASH [None]
